FAERS Safety Report 5356800-7 (Version None)
Quarter: 2007Q2

REPORT INFORMATION
  Report Type: 
  Country: None (occurrence: None)
  Receive Date: 20070614
  Receipt Date: 20060817
  Transmission Date: 20071010
  Serious: No
  Sender: FDA-Public Use
  Company Number: US-ASTRAZENECA-2006UW16443

PATIENT
  Age: 86 Year
  Sex: Female
  Weight: 53.5 kg

DRUGS (4)
  1. ATACAND [Suspect]
     Indication: BLOOD CHOLESTEROL INCREASED
     Route: 048
  2. TIAZAC [Concomitant]
  3. ATIVAN [Concomitant]
  4. BUPROPION HYDROCHLORIDE [Concomitant]

REACTIONS (4)
  - FATIGUE [None]
  - INSOMNIA [None]
  - NAUSEA [None]
  - RECTAL HAEMORRHAGE [None]
